FAERS Safety Report 21147567 (Version 1)
Quarter: 2022Q3

REPORT INFORMATION
  Report Type: Spontaneous
  Country: US (occurrence: None)
  Receive Date: 20220728
  Receipt Date: 20220728
  Transmission Date: 20221027
  Serious: Yes (Hospitalization)
  Sender: FDA-Public Use
  Company Number: None

PATIENT
  Sex: Female

DRUGS (2)
  1. TETRABENAZINE [Suspect]
     Active Substance: TETRABENAZINE
     Indication: Dyskinesia
     Dates: start: 20151023
  2. TETRABENAZINE [Suspect]
     Active Substance: TETRABENAZINE

REACTIONS (2)
  - Urinary tract infection [None]
  - Coronavirus test positive [None]
